FAERS Safety Report 24310107 (Version 8)
Quarter: 2025Q1

REPORT INFORMATION
  Report Type: Report from Study
  Country: US (occurrence: US)
  Receive Date: 20240912
  Receipt Date: 20250328
  Transmission Date: 20250408
  Serious: No
  Sender: BIOVITRUM
  Company Number: US-BIOVITRUM-2024-US-011191

PATIENT
  Age: 63 Year
  Sex: Male

DRUGS (5)
  1. DOPTELET [Suspect]
     Active Substance: AVATROMBOPAG MALEATE
     Indication: Thrombocytopenia
     Route: 048
     Dates: start: 20240706
  2. DOPTELET [Suspect]
     Active Substance: AVATROMBOPAG MALEATE
     Route: 048
     Dates: start: 20240806
  3. DOPTELET [Suspect]
     Active Substance: AVATROMBOPAG MALEATE
     Route: 048
     Dates: start: 20240806
  4. DOPTELET [Suspect]
     Active Substance: AVATROMBOPAG MALEATE
     Route: 048
     Dates: start: 20240816
  5. DOPTELET [Suspect]
     Active Substance: AVATROMBOPAG MALEATE
     Route: 048
     Dates: start: 20240816

REACTIONS (13)
  - Platelet count decreased [Unknown]
  - Fatigue [Unknown]
  - Drug effect less than expected [Unknown]
  - Product dose omission in error [Unknown]
  - Red blood cell count decreased [Unknown]
  - Blood iron decreased [Unknown]
  - Product dose omission issue [Unknown]
  - Frequent bowel movements [Unknown]
  - Liver disorder [Unknown]
  - Pancreatic disorder [Unknown]
  - Cellulitis [Unknown]
  - Platelet count abnormal [Unknown]
  - Abdominal discomfort [Unknown]
